FAERS Safety Report 9778902 (Version 2)
Quarter: 2013Q4

REPORT INFORMATION
  Report Type: Report from Study
  Country: DE (occurrence: DE)
  Receive Date: 20131223
  Receipt Date: 20131223
  Transmission Date: 20140711
  Serious: Yes (Other)
  Sender: FDA-Public Use
  Company Number: DE-TEVA-440208GER

PATIENT
  Sex: Male
  Weight: 92 kg

DRUGS (5)
  1. COPAXONE [Suspect]
     Indication: MULTIPLE SCLEROSIS
     Dosage: 20 MILLIGRAM DAILY;
     Route: 058
     Dates: start: 20100114
  2. THYROXIN [Concomitant]
     Indication: HYPOTHYROIDISM
     Dosage: 125 MICROGRAM DAILY;
     Route: 048
     Dates: start: 20130612
  3. VOLTAREN [Concomitant]
     Indication: ANALGESIC THERAPY
     Dosage: 2 DOSAGE FORMS DAILY;
     Route: 048
     Dates: start: 20130610, end: 20130613
  4. SIMVABETA [Concomitant]
     Dosage: 20 MILLIGRAM DAILY;
     Route: 048
  5. RAMIPRIL [Concomitant]
     Indication: HYPERTENSION
     Dosage: 5 MILLIGRAM DAILY;
     Route: 048
     Dates: start: 2008

REACTIONS (2)
  - Thyroid neoplasm [Recovered/Resolved]
  - Thyroid neoplasm [Recovered/Resolved]
